FAERS Safety Report 7412830-2 (Version None)
Quarter: 2011Q2

REPORT INFORMATION
  Report Type: 
  Country: None (occurrence: None)
  Receive Date: 20110413
  Receipt Date: 20110405
  Transmission Date: 20111010
  Serious: Yes (Death)
  Sender: FDA-Public Use
  Company Number: B0711743A

PATIENT
  Sex: Male
  Weight: 54 kg

DRUGS (15)
  1. TARGOCID [Concomitant]
     Dosage: 400MG PER DAY
     Route: 042
     Dates: end: 20050910
  2. ALKERAN [Suspect]
     Indication: ALLOGENIC BONE MARROW TRANSPLANTATION THERAPY
     Dosage: 110MG PER DAY
     Route: 042
     Dates: start: 20050906, end: 20050907
  3. NEO-MINOPHAGEN-C [Concomitant]
     Dosage: 40ML PER DAY
     Route: 042
     Dates: end: 20050906
  4. ZOVIRAX [Concomitant]
     Dosage: 1000MG PER DAY
     Route: 048
     Dates: end: 20050908
  5. FLUDARA [Suspect]
     Indication: ALLOGENIC BONE MARROW TRANSPLANTATION THERAPY
     Dosage: 40MG PER DAY
     Route: 042
     Dates: start: 20050901, end: 20050905
  6. RAMELTEON [Concomitant]
     Dosage: 1IUAX PER DAY
     Route: 042
     Dates: end: 20050907
  7. VORICONAZOLE [Suspect]
  8. DEPAS [Concomitant]
     Route: 048
     Dates: end: 20050912
  9. ROHYPNOL [Concomitant]
     Dosage: 1MG PER DAY
     Route: 048
     Dates: end: 20050908
  10. TACROLIMUS HYDRATE [Concomitant]
     Indication: IMMUNOSUPPRESSION
     Route: 065
     Dates: start: 20050908, end: 20050921
  11. MEROPEN [Concomitant]
     Dosage: .5G PER DAY
     Route: 042
     Dates: end: 20050910
  12. AMIKACIN SULFATE [Concomitant]
     Dosage: 400MG PER DAY
     Route: 042
     Dates: end: 20050909
  13. URSO 250 [Concomitant]
     Dosage: 600MG PER DAY
     Route: 048
     Dates: end: 20050908
  14. GASTER D [Concomitant]
     Dosage: 40MG PER DAY
     Route: 048
     Dates: start: 20050906, end: 20050908
  15. FUNGUARD [Suspect]
     Dosage: 300MG PER DAY
     Route: 042
     Dates: end: 20050929

REACTIONS (1)
  - HEPATIC VEIN OCCLUSION [None]
